FAERS Safety Report 21097858 (Version 1)
Quarter: 2022Q3

REPORT INFORMATION
  Report Type: Spontaneous
  Country: NL (occurrence: NL)
  Receive Date: 20220719
  Receipt Date: 20220719
  Transmission Date: 20221027
  Serious: Yes (Hospitalization, Other)
  Sender: FDA-Public Use
  Company Number: NL-LRB-00818515

PATIENT
  Sex: Male

DRUGS (7)
  1. SIMVASTATIN [Interacting]
     Active Substance: SIMVASTATIN
     Indication: Product used for unknown indication
     Dosage: 40 MILLIGRAM (FILM-COATED TABLET 40 MILLIGRAM)
     Route: 065
  2. DANAZOL [Interacting]
     Active Substance: DANAZOL
     Indication: Primary myelofibrosis
     Dosage: 200 MILLIGRAM, 3 TIMES A DAY (3X 2 CAPSULES DAILY)
     Route: 065
     Dates: start: 20211015
  3. ASPIRIN [Concomitant]
     Active Substance: ASPIRIN
     Indication: Product used for unknown indication
     Dosage: 80 MILLIGRAM (TABLET, 80 MG (MILLIGRAM))
     Route: 065
  4. METOPROLOL [Concomitant]
     Active Substance: METOPROLOL
     Indication: Product used for unknown indication
     Dosage: 50 MILLIGRAM (MODIFIED-RELEASE TABLET, 50 MG (MILLIGRAMS)
     Route: 065
  5. PANTOPRAZOLE [Concomitant]
     Active Substance: PANTOPRAZOLE
     Indication: Product used for unknown indication
     Dosage: 40 MILLIGRAM (STOMACH-RESISTANT TABLET, 40 MG (MILLIGRAMS)
     Route: 065
  6. RUXOLITINIB [Concomitant]
     Active Substance: RUXOLITINIB
     Indication: Product used for unknown indication
     Dosage: 20 MILLIGRAM (TABLET, 20 MG (MILLIGRAM)
     Route: 065
  7. TAMSULOSIN HYDROCHLORIDE [Concomitant]
     Active Substance: TAMSULOSIN HYDROCHLORIDE
     Indication: Product used for unknown indication
     Dosage: 0.4 MILLIGRAM (MODIFIED-RELEASE CAPSULE, 0.4 MG (MILLIGRAMS)
     Route: 065

REACTIONS (3)
  - Acute kidney injury [Recovering/Resolving]
  - Rhabdomyolysis [Recovering/Resolving]
  - Drug interaction [Unknown]
